FAERS Safety Report 14251420 (Version 3)
Quarter: 2018Q3

REPORT INFORMATION
  Report Type: Spontaneous
  Country: US (occurrence: US)
  Receive Date: 20171205
  Receipt Date: 20180809
  Transmission Date: 20181010
  Serious: No
  Sender: FDA-Public Use
  Company Number: US-PFIZER INC-2017516070

PATIENT
  Age: 58 Year
  Sex: Female
  Weight: 103 kg

DRUGS (4)
  1. DOCETAXEL. [Suspect]
     Active Substance: DOCETAXEL
     Dosage: 164 MG, 06 CYCLES, EVERY 3 WEEKS
     Dates: start: 20121211, end: 20130326
  2. DOCETAXEL. [Suspect]
     Active Substance: DOCETAXEL
     Indication: BREAST CANCER FEMALE
     Dosage: 82 MG, 06 CYCLES, EVERY 3 WEEKS
     Dates: start: 20121211, end: 20130326
  3. DOCETAXEL. [Suspect]
     Active Substance: DOCETAXEL
     Dosage: 123 MG, 06 CYCLES, EVERY 3 WEEKS
     Dates: start: 20121211, end: 20130326
  4. NEOSAR [Concomitant]
     Active Substance: CYCLOPHOSPHAMIDE
     Indication: CHEMOTHERAPY
     Dosage: UNK

REACTIONS (5)
  - Hair texture abnormal [Recovered/Resolved]
  - Hair colour changes [Recovered/Resolved]
  - Hair disorder [Recovered/Resolved]
  - Alopecia [Recovered/Resolved]
  - Madarosis [Recovered/Resolved]

NARRATIVE: CASE EVENT DATE: 201309
